FAERS Safety Report 26146579 (Version 1)
Quarter: 2025Q4

REPORT INFORMATION
  Report Type: Spontaneous
  Country: CH (occurrence: CH)
  Receive Date: 20251211
  Receipt Date: 20251211
  Transmission Date: 20260117
  Serious: Yes (Life-Threatening, Other)
  Sender: SANDOZ
  Company Number: CH-SANDOZ-SDZ2025CH091923

PATIENT
  Sex: Male

DRUGS (2)
  1. AZATHIOPRINE [Suspect]
     Active Substance: AZATHIOPRINE
     Indication: Product used for unknown indication
     Dosage: UNK 1 MG/KG/DAY
     Route: 064
  2. TACROLIMUS [Suspect]
     Active Substance: TACROLIMUS
     Indication: Product used for unknown indication
     Dosage: UNK
     Route: 064

REACTIONS (9)
  - Neonatal respiratory distress syndrome [Unknown]
  - Renal impairment [Recovered/Resolved]
  - Premature baby [Unknown]
  - Neutropenia [Recovered/Resolved]
  - Lymphopenia [Recovered/Resolved]
  - Foetal exposure during pregnancy [Unknown]
  - Postnatal growth restriction [Unknown]
  - Low birth weight baby [Unknown]
  - Hyponatraemia [Unknown]
